FAERS Safety Report 14690683 (Version 1)
Quarter: 2018Q1

REPORT INFORMATION
  Report Type: Other
  Country: US (occurrence: US)
  Receive Date: 20180328
  Receipt Date: 20180328
  Transmission Date: 20180509
  Serious: Yes (Hospitalization, Other)
  Sender: FDA-Public Use
  Company Number: US-ACIC FINE CHEMICALS INC-2044709

PATIENT
  Age: 35 Year
  Sex: Female

DRUGS (2)
  1. TRANEXAMIC ACID. [Suspect]
     Active Substance: TRANEXAMIC ACID
     Route: 041
  2. TRANEXAMIC ACID. [Suspect]
     Active Substance: TRANEXAMIC ACID
     Indication: HYSTERECTOMY

REACTIONS (2)
  - Peripheral artery thrombosis [None]
  - Renal vein thrombosis [None]
